FAERS Safety Report 8603902 (Version 5)
Quarter: 2013Q4

REPORT INFORMATION
  Report Type: Spontaneous
  Country: JP (occurrence: JP)
  Receive Date: 20120607
  Receipt Date: 20131101
  Transmission Date: 20140711
  Serious: Yes (Hospitalization, Disabling)
  Sender: FDA-Public Use
  Company Number: JP-MSD-1206USA00938

PATIENT
  Age: 83 Year
  Sex: Female

DRUGS (13)
  1. BONALON [Suspect]
     Indication: OSTEOPOROSIS
     Dosage: 5 MG, QD
     Route: 048
     Dates: start: 200601, end: 201205
  2. HALCION [Concomitant]
     Indication: INSOMNIA
     Dosage: 0.25 MG, QD
     Route: 048
  3. PURSENNID (SENNOSIDES) [Concomitant]
     Indication: CONSTIPATION
     Dosage: 48 MG, QD
     Route: 048
  4. PERSANTIN [Concomitant]
     Dosage: 100 MG, QD
     Route: 048
  5. FAMOTIDINE [Concomitant]
     Indication: ABDOMINAL PAIN UPPER
     Dosage: 80 MG, QD
     Route: 048
  6. KREMEZIN [Concomitant]
     Indication: RENAL FAILURE
     Dosage: 4 G, QD
     Route: 048
     Dates: start: 200501
  7. MUCOSTA [Concomitant]
     Indication: ABDOMINAL PAIN UPPER
     Dosage: 400 MG, QD
     Route: 048
     Dates: start: 20060101
  8. ALANTA [Concomitant]
     Indication: GASTRITIS
     Dosage: 9 DF, QD
     Route: 048
  9. APLACE [Concomitant]
     Indication: GASTRITIS
     Dosage: 400 MG, QD
     Route: 048
  10. DEPAS [Concomitant]
     Indication: ANXIETY
     Dosage: 2 MG, QD
     Route: 048
  11. COMELIAN [Concomitant]
     Indication: PROTEIN URINE
     Dosage: 400 MG, QD
     Route: 048
     Dates: start: 20050101
  12. SLOW-K [Concomitant]
     Dosage: 600 MG, QD
     Route: 048
     Dates: start: 20060101
  13. ELCITONIN [Concomitant]
     Indication: OSTEOPOROSIS
     Route: 058
     Dates: start: 200601

REACTIONS (1)
  - Femur fracture [Recovering/Resolving]
